FAERS Safety Report 6912246-9 (Version None)
Quarter: 2010Q3

REPORT INFORMATION
  Report Type: 
  Country: None (occurrence: None)
  Receive Date: 20100806
  Receipt Date: 20080408
  Transmission Date: 20110219
  Serious: No
  Sender: FDA-Public Use
  Company Number: US-PFIZER INC-2008011010

PATIENT
  Sex: Female
  Weight: 72.57 kg

DRUGS (3)
  1. DILANTIN [Suspect]
     Indication: CONVULSION
     Route: 048
     Dates: start: 19620101
  2. DRUG, UNSPECIFIED [Concomitant]
     Indication: NERVOUS SYSTEM DISORDER
     Route: 048
  3. DRUG, UNSPECIFIED [Concomitant]
     Indication: BONE DISORDER
     Route: 048

REACTIONS (5)
  - DIZZINESS [None]
  - DRUG INEFFECTIVE [None]
  - DYSPEPSIA [None]
  - FEELING ABNORMAL [None]
  - MALAISE [None]
